FAERS Safety Report 6395542 (Version 3)
Quarter: 2017Q2

REPORT INFORMATION
  Report Type: Spontaneous
  Country: FR (occurrence: FR)
  Receive Date: 20070830
  Receipt Date: 20170411
  Transmission Date: 20170830
  Serious: Yes (Life-Threatening, Hospitalization)
  Sender: FDA-Public Use
  Company Number: FR-PFIZER INC-2007069883

PATIENT
  Age: 51 Year
  Sex: Female
  Weight: 68 kg

DRUGS (6)
  1. COUMADINE [Interacting]
     Active Substance: WARFARIN SODIUM
     Indication: INTERNATIONAL NORMALISED RATIO
     Dosage: 3 MG, 1X/DAY
     Route: 048
     Dates: start: 20070108
  2. CORTANCYL [Interacting]
     Active Substance: PREDNISONE
     Indication: BRONCHITIS
     Dosage: 40 MG, DAILY
     Route: 048
     Dates: start: 20070608, end: 20070610
  3. ECONAZOLE NITRATE. [Interacting]
     Active Substance: ECONAZOLE NITRATE
     Indication: FUNGAL INFECTION
     Dosage: 150 MG, ONCE EVERY 3 DAYS, DOSAGE FORM: OVULE
     Route: 067
     Dates: start: 20070608, end: 20070611
  4. TRIFLUCAN [Suspect]
     Active Substance: FLUCONAZOLE
     Indication: BRONCHITIS
     Dosage: 50 MG, 1X/DAY
     Route: 048
     Dates: start: 20070608, end: 20070610
  5. KESTIN [Concomitant]
     Active Substance: EBASTINE
     Indication: HYPERSENSITIVITY
     Dosage: 10 MG, 1X/DAY
     Route: 048
     Dates: start: 20070608, end: 20070630
  6. TRIATEC /00885601/ [Concomitant]
     Active Substance: RAMIPRIL
     Dosage: 2.5 MG, 1X/DAY
     Route: 048
     Dates: start: 20070108

REACTIONS (3)
  - Malaise [Recovered/Resolved]
  - International normalised ratio increased [Recovered/Resolved]
  - Drug interaction [Unknown]

NARRATIVE: CASE EVENT DATE: 200706
